FAERS Safety Report 10965751 (Version 1)
Quarter: 2015Q1

REPORT INFORMATION
  Report Type: Spontaneous
  Country: US (occurrence: US)
  Receive Date: 20150330
  Receipt Date: 20150330
  Transmission Date: 20150721
  Serious: Yes (Other)
  Sender: FDA-Public Use
  Company Number: US-AUROBINDO-AUR-APL-2015-02762

PATIENT
  Age: 78 Year
  Sex: Male

DRUGS (4)
  1. ALDACTONE [Suspect]
     Active Substance: SPIRONOLACTONE
     Indication: PRODUCT USED FOR UNKNOWN INDICATION
     Dosage: 25 MG, DAILY
     Route: 048
  2. BUMEX [Suspect]
     Active Substance: BUMETANIDE
     Indication: PRODUCT USED FOR UNKNOWN INDICATION
     Dosage: 2 MG, UNK
     Route: 042
  3. TORASEMIDE TABLET [Suspect]
     Active Substance: TORSEMIDE
     Indication: CARDIAC FAILURE
     Dosage: 30 MG, ONCE A DAY
     Route: 048
  4. TORASEMIDE TABLET [Suspect]
     Active Substance: TORSEMIDE
     Dosage: 100 MG, UNK
     Route: 048

REACTIONS (1)
  - Weight decreased [Unknown]
